FAERS Safety Report 22350481 (Version 6)
Quarter: 2024Q2

REPORT INFORMATION
  Report Type: Report from Study
  Country: AU (occurrence: AU)
  Receive Date: 20230522
  Receipt Date: 20240510
  Transmission Date: 20240715
  Serious: Yes (Hospitalization, Other)
  Sender: FDA-Public Use
  Company Number: AU-TAKEDA-2023TUS049976

PATIENT
  Age: 74 Year
  Sex: Male

DRUGS (14)
  1. TEDUGLUTIDE [Suspect]
     Active Substance: TEDUGLUTIDE
     Indication: Short-bowel syndrome
     Dosage: 3.8 MILLIGRAM, QD
     Route: 042
     Dates: start: 20210921
  2. TEDUGLUTIDE [Suspect]
     Active Substance: TEDUGLUTIDE
     Indication: Short-bowel syndrome
     Dosage: 3.8 MILLIGRAM, QD
     Route: 042
     Dates: start: 20210921
  3. TEDUGLUTIDE [Suspect]
     Active Substance: TEDUGLUTIDE
     Indication: Short-bowel syndrome
     Dosage: 3.8 MILLIGRAM, QD
     Route: 042
     Dates: start: 20210921
  4. TEDUGLUTIDE [Suspect]
     Active Substance: TEDUGLUTIDE
     Indication: Short-bowel syndrome
     Dosage: 3.8 MILLIGRAM, QD
     Route: 042
     Dates: start: 20210921
  5. SODIBIC [Concomitant]
     Indication: Supplementation therapy
     Dosage: 840 MILLIGRAM, BID
     Route: 048
  6. MAGNESIUM OXIDE [Concomitant]
     Active Substance: MAGNESIUM OXIDE
     Indication: Supplementation therapy
     Dosage: UNK UNK, QD
     Route: 065
  7. MAGNESIUM [Concomitant]
     Active Substance: MAGNESIUM
     Indication: Supplementation therapy
     Dosage: UNK UNK, QD
     Route: 058
  8. TAUROLIDINE [Concomitant]
     Active Substance: TAUROLIDINE
     Dosage: 3 MILLILITER
     Route: 042
  9. TAPENTADOL [Concomitant]
     Active Substance: TAPENTADOL
     Indication: Pain management
     Dosage: 300 MILLIGRAM
     Route: 048
     Dates: start: 2023
  10. USTEKINUMAB [Concomitant]
     Active Substance: USTEKINUMAB
     Indication: Crohn^s disease
     Dosage: 90 MILLIGRAM
     Route: 058
     Dates: start: 2023
  11. IRON [Concomitant]
     Active Substance: IRON
     Dosage: UNK UNK, SINGLE
     Route: 042
     Dates: start: 20230303, end: 20230303
  12. MOLNUPIRAVIR [Concomitant]
     Active Substance: MOLNUPIRAVIR
     Indication: COVID-19
     Dosage: UNK UNK, QD
     Route: 048
     Dates: start: 20230921, end: 202309
  13. RESONIUM [Concomitant]
     Active Substance: SODIUM POLYSTYRENE SULFONATE
     Indication: Hyperkalaemia
     Dosage: 15 MILLIGRAM, QD
     Route: 048
     Dates: start: 20230424, end: 2023
  14. CEPHALEXIN [Concomitant]
     Active Substance: CEPHALEXIN
     Indication: Catheter site infection
     Dosage: 500 MILLIGRAM, QID
     Route: 048
     Dates: start: 20221209, end: 202212

REACTIONS (3)
  - Catheter site infection [Recovered/Resolved]
  - Vascular device infection [Recovered/Resolved]
  - Small intestinal obstruction [Recovered/Resolved]

NARRATIVE: CASE EVENT DATE: 20230101
